APPROVED DRUG PRODUCT: ETODOLAC
Active Ingredient: ETODOLAC
Strength: 400MG
Dosage Form/Route: TABLET;ORAL
Application: A075226 | Product #001
Applicant: RANBAXY LABORATORIES LTD
Approved: Nov 24, 1998 | RLD: No | RS: No | Type: DISCN